FAERS Safety Report 6376865-3 (Version None)
Quarter: 2009Q3

REPORT INFORMATION
  Report Type: 
  Country: None (occurrence: None)
  Receive Date: 20090925
  Receipt Date: 20090914
  Transmission Date: 20100115
  Serious: Yes (Hospitalization, Other)
  Sender: FDA-Public Use
  Company Number: US-ALEXION-A200900730

PATIENT
  Sex: Female

DRUGS (22)
  1. SOLIRIS [Suspect]
     Indication: PAROXYSMAL NOCTURNAL HAEMOGLOBINURIA
     Dosage: 600 MG, QW
     Route: 042
     Dates: start: 20070608, end: 20070601
  2. SOLIRIS [Suspect]
     Dosage: 900 MG, Q2W
     Route: 042
     Dates: start: 20070706
  3. ASPIRIN [Concomitant]
     Dosage: 81 MG, QOD
     Route: 048
     Dates: start: 20061229
  4. CATAPRES-TTS-1 [Concomitant]
     Dosage: 0.3 MG/24H, 1 PATCH QW
     Route: 062
     Dates: start: 20090218
  5. DIOVAN                             /01319601/ [Concomitant]
     Dosage: 80 MG, BID
     Route: 048
     Dates: start: 20090824
  6. DIPHENOXYLATE HCL AND ATROPINE SULFATE [Concomitant]
     Dosage: 0.025/2.5 MG, QID, PRN
     Dates: start: 20071003
  7. EXJADE [Concomitant]
     Dosage: 1000 MG, QD
     Route: 048
     Dates: start: 20070205
  8. FOLIC ACID [Concomitant]
     Dosage: 1 MG, QD
     Route: 048
     Dates: start: 20050922
  9. GABAPENTIN [Concomitant]
     Dosage: 300 MG, BID
     Route: 048
     Dates: start: 20080522
  10. HUMALOG [Concomitant]
     Dosage: 2 IU, QD LUNCH FOR BG}180
     Dates: start: 20090128
  11. ACETAMINOPHEN AND HYDROCODONE BITARTRATE [Concomitant]
     Dosage: 7.5/500 MG, 1.5 TAB QHS
     Route: 048
     Dates: start: 20081229
  12. LISINOPRIL [Concomitant]
     Dosage: 40 MG, BID
     Route: 048
     Dates: start: 20090403
  13. LORAZEPAM [Concomitant]
     Dosage: 0.5 MG, 1/2 TAB QD, PRN
     Route: 048
     Dates: start: 20090508
  14. NIFEDIPINE [Concomitant]
     Dosage: 90 MG, Q12H
     Route: 048
     Dates: start: 20090403
  15. OMEPRAZOLE [Concomitant]
     Dosage: 40 MG, BID
     Route: 048
     Dates: start: 20090504
  16. PREDNISONE TAB [Concomitant]
     Dosage: 20 MG, QD
     Route: 048
     Dates: start: 20090605
  17. PROMETHAZINE HCL [Concomitant]
     Dosage: 25 MG, Q4-6H PRN
     Route: 054
     Dates: start: 20090804
  18. RENA-VITE [Concomitant]
     Dosage: UNK
     Dates: start: 20070906
  19. RENVELA [Concomitant]
     Dosage: 800 MG, 4 TABLETS WITH MEALS AND 1 TABLET WITH SNACKS
     Route: 048
     Dates: start: 20081117
  20. SOTALOL [Concomitant]
     Dosage: 80 MG, BID
     Route: 048
     Dates: start: 20090605
  21. STARLIX [Concomitant]
     Dosage: 120 MG, TID
     Route: 048
     Dates: start: 20090119
  22. TYLENOL (CAPLET) [Concomitant]
     Indication: PAIN
     Dosage: 2 CAPSULES PRN
     Dates: start: 20071016

REACTIONS (2)
  - CARDIAC FAILURE CONGESTIVE [None]
  - COUGH [None]
